FAERS Safety Report 8366040-5 (Version None)
Quarter: 2012Q2

REPORT INFORMATION
  Report Type: 
  Country: None (occurrence: None)
  Receive Date: 20120517
  Receipt Date: 20120515
  Transmission Date: 20120825
  Serious: Yes (Other)
  Sender: FDA-Public Use
  Company Number: US-PFIZER INC-2012087538

PATIENT
  Sex: Female
  Weight: 77.551 kg

DRUGS (1)
  1. CHANTIX [Suspect]
     Indication: SMOKING CESSATION THERAPY
     Dosage: 1 MG, 2X/DAY
     Route: 048
     Dates: start: 20111101

REACTIONS (3)
  - OCULAR VASCULAR DISORDER [None]
  - PAIN IN EXTREMITY [None]
  - VISUAL FIELD DEFECT [None]
